FAERS Safety Report 18579752 (Version 1)
Quarter: 2020Q4

REPORT INFORMATION
  Report Type: Spontaneous
  Country: IE (occurrence: IE)
  Receive Date: 20201204
  Receipt Date: 20201204
  Transmission Date: 20210114
  Serious: Yes (Life-Threatening, Hospitalization)
  Sender: FDA-Public Use
  Company Number: IE-TEVA-2020-IE-1854494

PATIENT
  Age: 73 Year
  Sex: Male
  Weight: 102 kg

DRUGS (9)
  1. PREDNISOLONE (GENERIC) [Concomitant]
     Dosage: 20 MG FOR TWO DAYS THEN 10 MG FOR TWO DAYS, UNIT DOSE : 10 MG
  2. VALACICLOVIR (GENERIC) [Concomitant]
     Indication: ANTIVIRAL PROPHYLAXIS
     Dosage: ONGOING, UNIT DOSE : 500 MG
  3. CIPROFLOXACIN (GENERIC) [Suspect]
     Active Substance: CIPROFLOXACIN
     Indication: PSEUDOMONAS INFECTION
     Dosage: UNIT DOSE : 750 MG
     Route: 048
     Dates: start: 20200913, end: 20200917
  4. AZACITIDINE. [Concomitant]
     Active Substance: AZACITIDINE
     Indication: MYELODYSPLASTIC SYNDROME
     Dosage: ONE CYCLE
     Dates: start: 202008
  5. ATORVASTATIN (GENERIC) [Concomitant]
     Active Substance: ATORVASTATIN
     Indication: ISCHAEMIC HEART DISEASE PROPHYLAXIS
     Dosage: UNIT DOSE : 20 MG
  6. CIPROFLOXACIN (GENERIC) [Suspect]
     Active Substance: CIPROFLOXACIN
     Indication: NEUTROPENIC SEPSIS
  7. ALLOPURINOL (GENERIC) [Concomitant]
     Active Substance: ALLOPURINOL
     Indication: PROPHYLAXIS
     Dosage: ONGOING, UNIT DOSE : 300 MG
  8. PREDNISOLONE (GENERIC) [Concomitant]
     Dosage: 20 MG FOR TWO DAYS THEN 10 MG FOR TWO DAYS?INDICATION: HAEMATOLOGY
     Dates: start: 20200907, end: 20200917
  9. POSACONAZOLE [Concomitant]
     Active Substance: POSACONAZOLE
     Indication: ANTIFUNGAL PROPHYLAXIS
     Dosage: ONGOING, UNIT DOSE : 300 MG

REACTIONS (1)
  - Aortic aneurysm rupture [Not Recovered/Not Resolved]

NARRATIVE: CASE EVENT DATE: 20200917
